FAERS Safety Report 6769915-3 (Version None)
Quarter: 2010Q2

REPORT INFORMATION
  Report Type: 
  Country: None (occurrence: None)
  Receive Date: 20100615
  Receipt Date: 20100611
  Transmission Date: 20101027
  Serious: Yes (Hospitalization)
  Sender: FDA-Public Use
  Company Number: A0864361A

PATIENT
  Sex: Male
  Weight: 118.2 kg

DRUGS (12)
  1. AVANDIA [Suspect]
     Indication: DIABETES MELLITUS
     Route: 048
     Dates: start: 20050601
  2. PRINIVIL [Concomitant]
  3. LANTUS [Concomitant]
  4. VYTORIN [Concomitant]
  5. BUSPAR [Concomitant]
  6. EFFEXOR [Concomitant]
  7. VIAGRA [Concomitant]
  8. METFORMIN HCL [Concomitant]
  9. DARVOCET [Concomitant]
  10. AMBIEN [Concomitant]
  11. CELEBREX [Concomitant]
  12. PREVACID [Concomitant]

REACTIONS (4)
  - ANGINA UNSTABLE [None]
  - CARDIAC DISORDER [None]
  - CIRCULATORY COLLAPSE [None]
  - CORONARY ARTERY DISEASE [None]
